FAERS Safety Report 19677795 (Version 5)
Quarter: 2021Q3

REPORT INFORMATION
  Report Type: Report from Study
  Country: US (occurrence: US)
  Receive Date: 20210810
  Receipt Date: 20210827
  Transmission Date: 20211014
  Serious: Yes (Life-Threatening, Hospitalization, Other)
  Sender: FDA-Public Use
  Company Number: US-BRISTOL-MYERS SQUIBB COMPANY-BMS-2021-076464

PATIENT
  Age: 65 Year
  Sex: Male

DRUGS (2)
  1. 5?AZACYTIDINE [Suspect]
     Active Substance: AZACITIDINE
     Indication: MYELODYSPLASTIC SYNDROME
     Dosage: 75 MG/M2 ON DAYS 1?5
     Route: 042
     Dates: end: 20210703
  2. IPILIMUMAB [Suspect]
     Active Substance: IPILIMUMAB
     Indication: MYELODYSPLASTIC SYNDROME
     Dosage: 3MG/KG ON DAY 6
     Route: 042
     Dates: end: 20210706

REACTIONS (3)
  - Pericardial effusion [Unknown]
  - Encephalopathy [Recovering/Resolving]
  - Pneumonia [Recovered/Resolved]

NARRATIVE: CASE EVENT DATE: 20210802
